FAERS Safety Report 10916297 (Version 2)
Quarter: 2015Q2

REPORT INFORMATION
  Report Type: Spontaneous
  Country: US (occurrence: US)
  Receive Date: 20150316
  Receipt Date: 20150406
  Transmission Date: 20150821
  Serious: Yes (Other)
  Sender: FDA-Public Use
  Company Number: US-BAYER-2015-035431

PATIENT
  Sex: Female

DRUGS (1)
  1. AVELOX [Suspect]
     Active Substance: MOXIFLOXACIN HYDROCHLORIDE
     Dosage: UNK
     Dates: start: 201102

REACTIONS (9)
  - Injury [None]
  - Pain [None]
  - Fear [None]
  - Anxiety [None]
  - Product quality issue [None]
  - Emotional distress [None]
  - Neuropathy peripheral [None]
  - Quality of life decreased [None]
  - Economic problem [None]
